FAERS Safety Report 24560738 (Version 1)
Quarter: 2024Q4

REPORT INFORMATION
  Report Type: Spontaneous
  Country: US (occurrence: None)
  Receive Date: 20241028
  Receipt Date: 20241028
  Transmission Date: 20250115
  Serious: Yes (Other)
  Sender: Public
  Company Number: None

PATIENT
  Age: 76 Year
  Sex: Male
  Weight: 118 kg

DRUGS (1)
  1. LUMASON [Suspect]
     Active Substance: SULFUR HEXAFLUORIDE

REACTIONS (6)
  - Contrast media reaction [None]
  - Nausea [None]
  - Pruritus [None]
  - Hypoaesthesia oral [None]
  - Anal incontinence [None]
  - Urinary incontinence [None]

NARRATIVE: CASE EVENT DATE: 20241005
